FAERS Safety Report 21737559 (Version 1)
Quarter: 2022Q4

REPORT INFORMATION
  Report Type: Spontaneous
  Country: US (occurrence: US)
  Receive Date: 20221216
  Receipt Date: 20221216
  Transmission Date: 20230113
  Serious: Yes (Hospitalization, Other)
  Sender: FDA-Public Use
  Company Number: US-SA-SAC20221214000515

PATIENT
  Sex: Female

DRUGS (1)
  1. DUPIXENT [Suspect]
     Active Substance: DUPILUMAB
     Indication: Dermatitis atopic
     Dosage: 300 MG, QOW
     Route: 058
     Dates: start: 202008

REACTIONS (3)
  - Atrial fibrillation [Unknown]
  - Lung neoplasm malignant [Unknown]
  - Generalised tonic-clonic seizure [Unknown]

NARRATIVE: CASE EVENT DATE: 20221201
